FAERS Safety Report 4726376-3 (Version None)
Quarter: 2005Q3

REPORT INFORMATION
  Report Type: 
  Country: None (occurrence: None)
  Receive Date: 20050727
  Receipt Date: 20050715
  Transmission Date: 20060218
  Serious: Yes (Other)
  Sender: FDA-Public Use
  Company Number: 2005102507

PATIENT
  Sex: Female

DRUGS (2)
  1. UNISOM [Suspect]
     Dosage: 10 SLEEPGELS ONCE, ORAL
     Route: 048
     Dates: start: 20050714, end: 20050714
  2. TYLENOL PM (DIPHENHYDRAMINE, PARACETAMOL) [Suspect]
     Dosage: 1O TABS ONCE, ORAL
     Route: 048
     Dates: start: 20050714, end: 20050714

REACTIONS (4)
  - FEAR [None]
  - INTENTIONAL MISUSE [None]
  - OVERDOSE [None]
  - TREMOR [None]
